FAERS Safety Report 4947476-9 (Version None)
Quarter: 2006Q1

REPORT INFORMATION
  Report Type: 
  Country: None (occurrence: None)
  Receive Date: 20060320
  Receipt Date: 20060306
  Transmission Date: 20060701
  Serious: Yes (Other)
  Sender: FDA-Public Use
  Company Number: US-JNJFOC-20060301582

PATIENT
  Weight: 61.24 kg

DRUGS (6)
  1. REMICADE [Suspect]
     Indication: RHEUMATOID ARTHRITIS
     Route: 042
  2. METHOTREXATE [Concomitant]
     Route: 058
  3. METHOTREXATE [Concomitant]
     Indication: RHEUMATOID ARTHRITIS
     Route: 058
  4. ACTENOL [Concomitant]
     Indication: OSTEOPOROSIS
  5. BEXTRA [Concomitant]
  6. RELAFEN [Concomitant]

REACTIONS (2)
  - B-CELL UNCLASSIFIABLE LYMPHOMA LOW GRADE [None]
  - RHEUMATOID ARTHRITIS [None]
